FAERS Safety Report 12944364 (Version 1)
Quarter: 2016Q4

REPORT INFORMATION
  Report Type: Spontaneous
  Country: NL (occurrence: NL)
  Receive Date: 20161115
  Receipt Date: 20161115
  Transmission Date: 20170207
  Serious: Yes (Other)
  Sender: FDA-Public Use
  Company Number: NL-CELGENEUS-NLD-2016110378

PATIENT

DRUGS (1)
  1. AZACITIDINE INJECTABLE [Suspect]
     Active Substance: AZACITIDINE
     Indication: MYELODYSPLASTIC SYNDROME
     Route: 065

REACTIONS (9)
  - Thrombocytopenia [Unknown]
  - Pancytopenia [Unknown]
  - Infection [Unknown]
  - Pyrexia [Unknown]
  - Muscular weakness [Unknown]
  - Contusion [Unknown]
  - Epistaxis [Unknown]
  - Anaemia [Unknown]
  - Neutropenia [Unknown]
